FAERS Safety Report 6649379-0 (Version None)
Quarter: 2010Q1

REPORT INFORMATION
  Report Type: 
  Country: None (occurrence: None)
  Receive Date: 20100324
  Receipt Date: 20100316
  Transmission Date: 20100710
  Serious: Yes (Other)
  Sender: FDA-Public Use
  Company Number: IT-PFIZER INC-2010018750

PATIENT
  Sex: Male

DRUGS (9)
  1. TORVAST [Suspect]
     Indication: HYPERCHOLESTEROLAEMIA
     Dosage: 20 MG/DAY
     Route: 048
  2. TORVAST [Suspect]
     Indication: ISCHAEMIC CARDIOMYOPATHY
  3. TORVAST [Suspect]
     Indication: ASTHMA
  4. TORVAST [Suspect]
     Indication: EMPHYSEMA
  5. CIPROFLOXACIN [Suspect]
     Indication: INFLUENZA
     Dosage: UNK
  6. DELTACORTENE [Concomitant]
     Indication: ASTHMA
     Dosage: 7.5 MG
  7. IRBESARTAN [Concomitant]
     Dosage: 100 MG
  8. LASIX [Concomitant]
     Dosage: 25 MG
  9. OMEPRAZOLE [Concomitant]

REACTIONS (2)
  - OEDEMA [None]
  - RASH ERYTHEMATOUS [None]
